FAERS Safety Report 6737066-X (Version None)
Quarter: 2010Q2

REPORT INFORMATION
  Report Type: 
  Country: None (occurrence: None)
  Receive Date: 20100524
  Receipt Date: 20100520
  Transmission Date: 20101027
  Serious: Yes (Other)
  Sender: FDA-Public Use
  Company Number: FR-BIOGENIDEC-2009BI039288

PATIENT
  Age: 41 Year
  Sex: Male
  Weight: 100 kg

DRUGS (1)
  1. TYSABRI [Suspect]
     Indication: MULTIPLE SCLEROSIS
     Route: 042
     Dates: start: 20070801, end: 20091023

REACTIONS (2)
  - LUNG CANCER METASTATIC [None]
  - MULTIPLE SCLEROSIS RELAPSE [None]
